FAERS Safety Report 7644899-4 (Version None)
Quarter: 2011Q3

REPORT INFORMATION
  Report Type: 
  Country: None (occurrence: None)
  Receive Date: 20110729
  Receipt Date: 20110719
  Transmission Date: 20111222
  Serious: Yes (Death)
  Sender: FDA-Public Use
  Company Number: AU-ROCHE-785367

PATIENT
  Sex: Male
  Weight: 80.4 kg

DRUGS (7)
  1. AVASTIN [Suspect]
     Route: 042
     Dates: start: 20110112, end: 20110322
  2. PANTOPRAZOLE SODIUM [Concomitant]
     Indication: GASTROOESOPHAGEAL REFLUX DISEASE
     Route: 048
     Dates: start: 20091201
  3. MIRTAZAPINE [Concomitant]
     Route: 048
     Dates: start: 20110202
  4. KEPPRA [Concomitant]
     Route: 048
     Dates: start: 20110113
  5. TEMOZOLOMIDE [Concomitant]
     Indication: GLIOBLASTOMA
     Dosage: FREQUENCY: D1-D20
     Route: 048
     Dates: start: 20110112
  6. AVASTIN [Suspect]
     Indication: GLIOBLASTOMA
     Route: 042
  7. VALPROATE SODIUM [Concomitant]
     Route: 048
     Dates: start: 20091201

REACTIONS (4)
  - HAEMORRHAGE INTRACRANIAL [None]
  - DEATH [None]
  - FALL [None]
  - CONVULSION [None]
